FAERS Safety Report 9648183 (Version 1)
Quarter: 2013Q4

REPORT INFORMATION
  Report Type: Spontaneous
  Country: DE (occurrence: DE)
  Receive Date: 20131028
  Receipt Date: 20131028
  Transmission Date: 20140711
  Serious: Yes (Other)
  Sender: FDA-Public Use
  Company Number: PHHY2013DE120166

PATIENT
  Sex: Male

DRUGS (4)
  1. AREDIA [Suspect]
     Indication: PLASMA CELL MYELOMA
     Dosage: UNK UKN, UNK
     Dates: start: 2001
  2. AREDIA [Suspect]
     Dosage: UNK UKN, UNK
     Dates: start: 2003
  3. ZOMETA [Suspect]
     Indication: PLASMA CELL MYELOMA
     Dosage: UNK UKN, UNK
     Dates: start: 2002
  4. ZOMETA [Suspect]
     Dosage: UNK UKN, UNK
     Dates: start: 2010

REACTIONS (5)
  - Osteolysis [Unknown]
  - Osteonecrosis of jaw [Unknown]
  - Dental caries [Unknown]
  - Ear pain [Unknown]
  - Metastasis [Unknown]
